FAERS Safety Report 4383359-3 (Version None)
Quarter: 2004Q2

REPORT INFORMATION
  Report Type: 
  Country: None (occurrence: None)
  Receive Date: 20040618
  Receipt Date: 20040604
  Transmission Date: 20050107
  Serious: Yes (Hospitalization)
  Sender: FDA-Public Use
  Company Number: 2004217732NO

PATIENT
  Age: 88 Year
  Sex: Female

DRUGS (7)
  1. CELEBRA (CELECOXIB) CAPSULE [Suspect]
     Indication: BACK PAIN
     Dosage: ORAL
     Route: 048
     Dates: end: 20040401
  2. ALBYL-E (ACETYLSALICYLIC ACID) [Suspect]
     Dosage: ORAL
     Route: 048
     Dates: end: 20040401
  3. TEMPILO [Concomitant]
  4. LACTULOSE [Concomitant]
  5. PARACET [Concomitant]
  6. IMPORTAL (LACTILOL) [Concomitant]
  7. CIPRALEX [Concomitant]

REACTIONS (7)
  - ANAEMIA [None]
  - GASTRIC ULCER [None]
  - GENERAL PHYSICAL HEALTH DETERIORATION [None]
  - HAEMATEMESIS [None]
  - HAEMORRHAGE [None]
  - HELICOBACTER INFECTION [None]
  - NERVOUS SYSTEM DISORDER [None]
